FAERS Safety Report 15431128 (Version 1)
Quarter: 2018Q3

REPORT INFORMATION
  Report Type: Spontaneous
  Country: US (occurrence: US)
  Receive Date: 20180926
  Receipt Date: 20180926
  Transmission Date: 20181010
  Serious: No
  Sender: FDA-Public Use
  Company Number: US-INDIVIOR LIMITED-INDV-112945-2018

PATIENT
  Sex: Male

DRUGS (4)
  1. SUBOXONE [Suspect]
     Active Substance: BUPRENORPHINE HYDROCHLORIDE\NALOXONE HYDROCHLORIDE
     Indication: PAIN
     Dosage: TAKING 2 MG IN THE MORNING AND THEN WOULD TAKE 2 MG IN THE EVENING
     Route: 065
  2. GABAPENTIN. [Concomitant]
     Active Substance: GABAPENTIN
     Indication: BACK PAIN
     Dosage: UNK
     Route: 065
  3. ASPIRIN                            /00002701/ [Concomitant]
     Active Substance: ASPIRIN
     Indication: PRODUCT USED FOR UNKNOWN INDICATION
     Dosage: UNK
     Route: 065
  4. SUBOXONE [Suspect]
     Active Substance: BUPRENORPHINE HYDROCHLORIDE\NALOXONE HYDROCHLORIDE
     Indication: DRUG DEPENDENCE
     Dosage: TAKING 4 MG IN THE MORNING AND ADDITIONAL DOSE 8 HOURS LATER IN THE EVENING
     Route: 065

REACTIONS (6)
  - Dysgeusia [Unknown]
  - Inappropriate schedule of drug administration [Unknown]
  - Intentional underdose [Recovered/Resolved]
  - Wrong technique in product usage process [Unknown]
  - Fear [Unknown]
  - Feeling abnormal [Unknown]
